FAERS Safety Report 5311601-0 (Version None)
Quarter: 2007Q1

REPORT INFORMATION
  Report Type: 
  Country: None (occurrence: None)
  Receive Date: 20070201
  Receipt Date: 20061227
  Transmission Date: 20070707
  Serious: No
  Sender: FDA-Public Use
  Company Number: 259559

PATIENT
  Age: 63 Year
  Sex: Male
  Weight: 90.7 kg

DRUGS (7)
  1. LEVEMIR [Suspect]
     Indication: INSULIN-REQUIRING TYPE II DIABETES MELLITUS
     Dosage: 45 IU, QD, SUBCUTANEOUS
     Route: 058
     Dates: start: 20061101, end: 20061227
  2. NOVOLOG [Concomitant]
  3. ALLEGRA /01314201/ (FEXOFENADINE) [Concomitant]
  4. FLUOXETINE [Concomitant]
  5. RENAGEL /01459902/ (SEVELAMER HYDROCHLORIDE) [Concomitant]
  6. METOCLOPRAMIDE HCL (METOCLOPRAMIDE HYDROCHLORIDE) [Concomitant]
  7. XIFAXAN (RIFAXIMIN) [Concomitant]

REACTIONS (1)
  - ASCITES [None]
